FAERS Safety Report 20322560 (Version 4)
Quarter: 2022Q2

REPORT INFORMATION
  Report Type: Report from Study
  Country: US (occurrence: US)
  Receive Date: 20220111
  Receipt Date: 20220429
  Transmission Date: 20220721
  Serious: Yes (Death, Hospitalization, Other)
  Sender: FDA-Public Use
  Company Number: US-TAKEDA-2022TUS001597

PATIENT
  Age: 71 Year
  Sex: Male
  Weight: 84 kg

DRUGS (1)
  1. MOBOCERTINIB [Suspect]
     Active Substance: MOBOCERTINIB
     Indication: Lung neoplasm malignant
     Dosage: 10 MILLIGRAM, QD
     Route: 048
     Dates: start: 202201

REACTIONS (4)
  - Death [Fatal]
  - Pruritus [Unknown]
  - Dry skin [Unknown]
  - Diarrhoea [Not Recovered/Not Resolved]

NARRATIVE: CASE EVENT DATE: 20220318
